FAERS Safety Report 10085219 (Version 1)
Quarter: 2014Q2

REPORT INFORMATION
  Report Type: Report from Study
  Country: US (occurrence: US)
  Receive Date: 20140417
  Receipt Date: 20140417
  Transmission Date: 20141212
  Serious: Yes (Hospitalization)
  Sender: FDA-Public Use
  Company Number: PHHO2014US005179

PATIENT
  Sex: Male
  Weight: 78.3 kg

DRUGS (6)
  1. AFINITOR [Suspect]
     Indication: DIFFUSE LARGE B-CELL LYMPHOMA
     Dosage: 100 MG, UNK
     Dates: start: 20131217
  2. DOXORUBICIN HYDROCHLORIDE SANDOZ [Suspect]
     Dosage: 100 MG, UNK
     Dates: start: 20131217, end: 20140319
  3. PREDNISONE SANDOZ [Suspect]
     Dosage: 1000 MG, UNK
     Dates: start: 20131217, end: 20140323
  4. RITUXIMAB [Suspect]
     Dosage: 750 MG, UNK
     Dates: start: 20131217, end: 20140328
  5. VINCRISTINE SULFATE [Suspect]
     Dosage: 2 MG, UNK
     Dates: start: 20131217, end: 20140319
  6. CYCLOPHOSPHAMIDE [Suspect]
     Dosage: 1500 MG, UNK
     Dates: start: 20131217, end: 20140319

REACTIONS (1)
  - Platelet count decreased [Recovering/Resolving]
